FAERS Safety Report 19159581 (Version 1)
Quarter: 2021Q2

REPORT INFORMATION
  Report Type: Spontaneous
  Country: FR (occurrence: FR)
  Receive Date: 20210420
  Receipt Date: 20210420
  Transmission Date: 20210717
  Serious: Yes (Other)
  Sender: FDA-Public Use
  Company Number: FR-TEVA-2021-FR-1897982

PATIENT
  Age: 71 Year
  Sex: Female
  Weight: 70 kg

DRUGS (6)
  1. DEXAMETHASONE. [Suspect]
     Active Substance: DEXAMETHASONE
     Indication: COVID-19
     Dosage: UNIT DOSE: 10 MG
     Route: 042
     Dates: start: 20201119, end: 20201129
  2. TAZOCILLINE [Suspect]
     Active Substance: PIPERACILLIN SODIUM\TAZOBACTAM SODIUM
     Indication: ANTIBIOTIC PROPHYLAXIS
     Dosage: UNIT DOSE: 16 GRAM
     Route: 042
     Dates: start: 20201122, end: 20201125
  3. SEVOFLURANE. [Suspect]
     Active Substance: SEVOFLURANE
     Indication: SEDATION
     Dosage: UNIT DOSE: 5 ML
     Route: 055
     Dates: start: 20201121, end: 20201125
  4. CEFTRIAXONE BASE [Suspect]
     Active Substance: CEFTRIAXONE
     Indication: ANTIBIOTIC PROPHYLAXIS
     Dosage: UNIT DOSE: 1 GRAM
     Route: 042
     Dates: start: 20201119, end: 20201119
  5. NORADRENALINE [Suspect]
     Active Substance: NOREPINEPHRINE
     Indication: SHOCK SYMPTOM
     Dosage: UNSPECIFIED
     Route: 042
     Dates: start: 20201120, end: 20201203
  6. SPIRAMYCINE [Suspect]
     Active Substance: SPIRAMYCIN
     Indication: ANTIBIOTIC PROPHYLAXIS
     Dosage: 9 KU
     Route: 042
     Dates: start: 20201119, end: 20201120

REACTIONS (1)
  - Diabetes insipidus [Recovering/Resolving]

NARRATIVE: CASE EVENT DATE: 20201123
